FAERS Safety Report 14105255 (Version 1)
Quarter: 2017Q4

REPORT INFORMATION
  Report Type: Spontaneous
  Country: CA (occurrence: CA)
  Receive Date: 20171018
  Receipt Date: 20171018
  Transmission Date: 20180321
  Serious: Yes (Other)
  Sender: FDA-Public Use
  Company Number: CA-009507513-1710CAN008394

PATIENT
  Age: 24 Year
  Sex: Female

DRUGS (3)
  1. EMEND [Interacting]
     Active Substance: APREPITANT
     Dosage: 80 MG ON DAYS 2 AND 3
     Route: 048
     Dates: start: 201705
  2. EMEND [Suspect]
     Active Substance: APREPITANT
     Indication: NAUSEA
     Dosage: 125 MG, ON DAY 1
     Route: 048
     Dates: start: 201705
  3. DILANTIN [Interacting]
     Active Substance: PHENYTOIN
     Indication: SEIZURE
     Dosage: UNK

REACTIONS (4)
  - Seizure [Unknown]
  - Drug effect decreased [Unknown]
  - Drug interaction [Unknown]
  - Product use in unapproved indication [Unknown]

NARRATIVE: CASE EVENT DATE: 2017
